FAERS Safety Report 13944682 (Version 2)
Quarter: 2017Q4

REPORT INFORMATION
  Report Type: Spontaneous
  Country: CA (occurrence: CA)
  Receive Date: 20170907
  Receipt Date: 20171021
  Transmission Date: 20180320
  Serious: Yes (Death, Other)
  Sender: FDA-Public Use
  Company Number: CA-BEH-2017083342

PATIENT
  Age: 19 Month
  Sex: Female

DRUGS (8)
  1. OXYGEN. [Concomitant]
     Active Substance: OXYGEN
     Dosage: 3 L/MIN, UNK
     Route: 065
     Dates: start: 20160816
  2. DILAUDID [Suspect]
     Active Substance: HYDROMORPHONE HYDROCHLORIDE
     Dosage: 0.3 MG, Q3H
     Route: 042
     Dates: start: 20160816, end: 20160816
  3. OXYGEN. [Concomitant]
     Active Substance: OXYGEN
     Dosage: 1 L/MIN, UNK
     Route: 065
     Dates: start: 20160816
  4. PRIVIGEN [Suspect]
     Active Substance: HUMAN IMMUNOGLOBULIN G
     Indication: IMMUNODEFICIENCY CONGENITAL
     Dosage: 11 ML
     Route: 065
     Dates: start: 20160816, end: 20160816
  5. PRIVIGEN [Suspect]
     Active Substance: HUMAN IMMUNOGLOBULIN G
     Dosage: MULTIPLE DOSES RECEIVED
     Route: 065
  6. DILAUDID [Suspect]
     Active Substance: HYDROMORPHONE HYDROCHLORIDE
     Dosage: VARIABLE DOSES RECEIVED
     Route: 042
     Dates: start: 20160726
  7. OXYGEN. [Concomitant]
     Active Substance: OXYGEN
     Dosage: 2 L/MIN, UNK
     Route: 065
     Dates: start: 20160816
  8. OXYGEN. [Concomitant]
     Active Substance: OXYGEN
     Dosage: 1 L/MIN, UNK
     Route: 065
     Dates: start: 20160816

REACTIONS (4)
  - Hypoxia [Unknown]
  - Tachypnoea [Recovered/Resolved]
  - Nasal congestion [Unknown]
  - Hypoxia [Recovered/Resolved]

NARRATIVE: CASE EVENT DATE: 20160816
